FAERS Safety Report 26101053 (Version 1)
Quarter: 2025Q4

REPORT INFORMATION
  Report Type: Spontaneous
  Country: EU (occurrence: EU)
  Receive Date: 20251128
  Receipt Date: 20251128
  Transmission Date: 20260117
  Serious: Yes (Other)
  Sender: GLAXOSMITHKLINE
  Company Number: EU-GSKCCFEMEA-Case-02741240_AE-105408

PATIENT
  Age: 79 Year

DRUGS (1)
  1. VALACYCLOVIR [Suspect]
     Active Substance: VALACYCLOVIR HYDROCHLORIDE
     Indication: Herpes ophthalmic
     Dosage: UNK

REACTIONS (2)
  - Herpes ophthalmic [Unknown]
  - Disease recurrence [Unknown]
